FAERS Safety Report 5421105-2 (Version None)
Quarter: 2007Q3

REPORT INFORMATION
  Report Type: 
  Country: None (occurrence: None)
  Receive Date: 20070821
  Receipt Date: 20070815
  Transmission Date: 20080115
  Serious: Yes (Other)
  Sender: FDA-Public Use
  Company Number: US-JNJFOC-20070803264

PATIENT
  Age: 81 Year
  Sex: Female
  Weight: 83.92 kg

DRUGS (6)
  1. IMODIUM ADVANCED [Suspect]
     Indication: STOMACH DISCOMFORT
  2. IMODIUM ADVANCED [Suspect]
     Indication: PROPHYLAXIS
  3. LIPITOR [Concomitant]
     Indication: BLOOD CHOLESTEROL INCREASED
  4. HYDROCHLOROTHIAZIDE [Concomitant]
     Indication: DIURETIC THERAPY
  5. ASPIRIN [Concomitant]
     Indication: GENERAL PHYSICAL CONDITION
  6. LISINOPRIL [Concomitant]
     Indication: BLOOD PRESSURE

REACTIONS (3)
  - INAPPROPRIATE SCHEDULE OF DRUG ADMINISTRATION [None]
  - ROAD TRAFFIC ACCIDENT [None]
  - SOMNOLENCE [None]
